FAERS Safety Report 9675013 (Version 1)
Quarter: 2013Q4

REPORT INFORMATION
  Report Type: Spontaneous
  Country: US (occurrence: US)
  Receive Date: 20131107
  Receipt Date: 20131107
  Transmission Date: 20140711
  Serious: Yes (Hospitalization)
  Sender: FDA-Public Use
  Company Number: US-UCBSA-101778

PATIENT
  Age: 83 Year
  Sex: Male
  Weight: 71.8 kg

DRUGS (3)
  1. NITROGLYCERIN [Suspect]
  2. TAK-700 VS PLACEBO [Suspect]
     Indication: PROSTATE CANCER
     Route: 048
     Dates: start: 20130904, end: 20130922
  3. LUPRON [Suspect]
     Indication: PROSTATE CANCER
     Route: 030
     Dates: start: 20130903

REACTIONS (3)
  - Hip fracture [Unknown]
  - Fall [Recovering/Resolving]
  - Dizziness [Unknown]
